FAERS Safety Report 9473594 (Version 2)
Quarter: 2013Q3

REPORT INFORMATION
  Report Type: Spontaneous
  Country: US (occurrence: US)
  Receive Date: 20130823
  Receipt Date: 20130823
  Transmission Date: 20140515
  Serious: Yes (Disabling)
  Sender: FDA-Public Use
  Company Number: US-BRISTOL-MYERS SQUIBB COMPANY-16578072

PATIENT
  Age: 42 Year
  Sex: Male

DRUGS (2)
  1. SPRYCEL [Suspect]
     Indication: CHRONIC MYELOID LEUKAEMIA
     Route: 048
     Dates: start: 201201, end: 20120229
  2. RISPERIDONE [Concomitant]

REACTIONS (2)
  - Headache [Recovering/Resolving]
  - Musculoskeletal pain [Recovering/Resolving]
